FAERS Safety Report 17277280 (Version 1)
Quarter: 2020Q1

REPORT INFORMATION
  Report Type: Spontaneous
  Country: US (occurrence: US)
  Receive Date: 20200116
  Receipt Date: 20200116
  Transmission Date: 20200409
  Serious: Yes (Disabling)
  Sender: FDA-Public Use
  Company Number: None

PATIENT
  Age: 35 Year
  Sex: Female
  Weight: 99 kg

DRUGS (3)
  1. VITAMIN D [Concomitant]
     Active Substance: VITAMIN D NOS
  2. IRON [Concomitant]
     Active Substance: IRON
  3. AIMOVIG [Suspect]
     Active Substance: ERENUMAB-AOOE
     Indication: MIGRAINE
     Dosage: ?          QUANTITY:1 INJECTION(S);OTHER FREQUENCY:EVERY 4 WEEKS;OTHER ROUTE:SUBCUTANEOUSLY?
     Dates: start: 20190827, end: 20200116

REACTIONS (10)
  - Asthenia [None]
  - Palpitations [None]
  - Presyncope [None]
  - Fatigue [None]
  - Dizziness [None]
  - Tinnitus [None]
  - Restless legs syndrome [None]
  - Tachycardia [None]
  - Nausea [None]
  - Muscle spasms [None]

NARRATIVE: CASE EVENT DATE: 20200115
